FAERS Safety Report 25685305 (Version 1)
Quarter: 2025Q3

REPORT INFORMATION
  Report Type: Spontaneous
  Country: EU (occurrence: EU)
  Receive Date: 20250815
  Receipt Date: 20250815
  Transmission Date: 20251021
  Serious: Yes (Disabling, Other)
  Sender: MACLEODS
  Company Number: EU-MACLEODS PHARMA-MAC2022034082

PATIENT

DRUGS (2)
  1. ROSUVASTATIN [Suspect]
     Active Substance: ROSUVASTATIN
     Indication: Dyslipidaemia
     Dosage: 20 MILLIGRAM, QD
     Route: 065
  2. FINASTERIDE [Concomitant]
     Active Substance: FINASTERIDE
     Indication: Androgenetic alopecia
     Dosage: 1 MILLIGRAM, QD
     Route: 065

REACTIONS (3)
  - Tendon calcification [Recovering/Resolving]
  - Tendon disorder [Recovering/Resolving]
  - Arthralgia [Recovering/Resolving]
